FAERS Safety Report 24301680 (Version 1)
Quarter: 2024Q3

REPORT INFORMATION
  Report Type: Report from Study
  Country: BR (occurrence: BR)
  Receive Date: 20240910
  Receipt Date: 20240910
  Transmission Date: 20241016
  Serious: Yes (Hospitalization)
  Sender: ROCHE
  Company Number: BR-ROCHE-10000072891

PATIENT
  Age: 12 Month
  Sex: Female
  Weight: 9.8 kg

DRUGS (4)
  1. PULMOZYME [Suspect]
     Active Substance: DORNASE ALFA
     Indication: Cystic fibrosis
     Route: 065
  2. PANCREATIN [Concomitant]
     Active Substance: PANCRELIPASE
  3. ALBUTEROL [Concomitant]
     Active Substance: ALBUTEROL
  4. DEKKA [Concomitant]
     Indication: Cystic fibrosis

REACTIONS (2)
  - Influenza [Recovered/Resolved]
  - Pseudomonas infection [Recovering/Resolving]
